FAERS Safety Report 17529873 (Version 1)
Quarter: 2020Q1

REPORT INFORMATION
  Report Type: Spontaneous
  Country: AU (occurrence: AU)
  Receive Date: 20200311
  Receipt Date: 20200311
  Transmission Date: 20200409
  Serious: Yes (Other)
  Sender: FDA-Public Use
  Company Number: AU-NAPPMUNDI-GBR-2020-0075548

PATIENT
  Age: 8 Year
  Sex: Male

DRUGS (9)
  1. MIDAZOLAM HYDROCHLORIDE. [Suspect]
     Active Substance: MIDAZOLAM HYDROCHLORIDE
     Indication: PRODUCT USED FOR UNKNOWN INDICATION
     Dosage: UNK
     Route: 065
  2. NEOSTIGMINE. [Concomitant]
     Active Substance: NEOSTIGMINE METHYLSULFATE
     Dosage: UNK
  3. OXYGEN. [Concomitant]
     Active Substance: OXYGEN
     Dosage: UNK
  4. THIOPENTONE SODIUM [Suspect]
     Active Substance: THIOPENTAL SODIUM
     Indication: PRODUCT USED FOR UNKNOWN INDICATION
     Dosage: UNK
     Route: 065
  5. MORPHINE SULFATE. [Suspect]
     Active Substance: MORPHINE SULFATE
     Indication: PRODUCT USED FOR UNKNOWN INDICATION
     Dosage: UNK
     Route: 065
  6. HALOTHANE. [Concomitant]
     Active Substance: HALOTHANE
     Dosage: UNK
  7. ATROPINE. [Concomitant]
     Active Substance: ATROPINE
     Dosage: UNK
  8. NITROUS OXIDE. [Concomitant]
     Active Substance: NITROUS OXIDE
     Dosage: UNK
  9. ATRACURIUM [Suspect]
     Active Substance: ATRACURIUM
     Indication: PRODUCT USED FOR UNKNOWN INDICATION
     Dosage: UNK
     Route: 065

REACTIONS (1)
  - Upper airway obstruction [Unknown]
